FAERS Safety Report 14917633 (Version 1)
Quarter: 2018Q2

REPORT INFORMATION
  Report Type: Spontaneous
  Country: FR (occurrence: FR)
  Receive Date: 20180521
  Receipt Date: 20180521
  Transmission Date: 20180711
  Serious: Yes (Other)
  Sender: FDA-Public Use
  Company Number: FR-MERCK KGAA-2048096

PATIENT
  Age: 44 Year
  Sex: Female

DRUGS (1)
  1. NOVOTHYROX [Suspect]
     Active Substance: LEVOTHYROXINE SODIUM
     Indication: POST PROCEDURAL HYPOTHYROIDISM
     Dates: start: 201703

REACTIONS (26)
  - Headache [Recovered/Resolved]
  - Stress [Recovered/Resolved]
  - Emotional distress [Recovered/Resolved]
  - Thyroxine free increased [None]
  - Neck pain [Recovered/Resolved]
  - Basophil count increased [None]
  - Hyperthyroidism [None]
  - Asthenia [Recovered/Resolved]
  - Decreased activity [Recovered/Resolved]
  - Anxiety [None]
  - Alopecia [Recovered/Resolved]
  - Back pain [Recovered/Resolved]
  - Irritability [Recovered/Resolved]
  - Fatigue [None]
  - Hypothyroidism [None]
  - Transferrin saturation decreased [None]
  - Insomnia [Recovered/Resolved]
  - Depression [Recovered/Resolved]
  - Weight increased [Recovered/Resolved]
  - Muscle spasms [Recovered/Resolved]
  - Diarrhoea [Recovered/Resolved]
  - Tendonitis [Recovered/Resolved]
  - Pain [Recovered/Resolved]
  - Social avoidant behaviour [Recovered/Resolved]
  - Dyspnoea [Recovered/Resolved]
  - Iron binding capacity total [None]

NARRATIVE: CASE EVENT DATE: 201707
